FAERS Safety Report 5787781-X (Version None)
Quarter: 2008Q2

REPORT INFORMATION
  Report Type: 
  Country: None (occurrence: None)
  Receive Date: 20080625
  Receipt Date: 20080610
  Transmission Date: 20081010
  Serious: Yes (Disabling, Other)
  Sender: FDA-Public Use
  Company Number: PHHY2008GB10823

PATIENT

DRUGS (5)
  1. PAMIDRONATE DISODIUM [Suspect]
     Indication: METASTASES TO BONE
     Dosage: UNK
     Dates: start: 20060901, end: 20080501
  2. TRAMADOL HCL [Suspect]
  3. OXYCODONE HCL [Suspect]
  4. PALLADONE [Concomitant]
     Dosage: 1.3 MG, UNK
     Route: 048
  5. ACETAMINOPHEN [Concomitant]
     Dosage: 1 G, QD
     Route: 048

REACTIONS (4)
  - ABNORMAL DREAMS [None]
  - BONE PAIN [None]
  - HALLUCINATION [None]
  - OSTEONECROSIS [None]
